FAERS Safety Report 6327541-4 (Version None)
Quarter: 2009Q3

REPORT INFORMATION
  Report Type: 
  Country: None (occurrence: None)
  Receive Date: 20090825
  Receipt Date: 20090812
  Transmission Date: 20100115
  Serious: Yes (Hospitalization, Other)
  Sender: FDA-Public Use
  Company Number: DE-ELI_LILLY_AND_COMPANY-DE200905001741

PATIENT
  Sex: Male

DRUGS (3)
  1. STRATTERA [Suspect]
     Indication: ATTENTION DEFICIT/HYPERACTIVITY DISORDER
     Dosage: UNK, UNKNOWN
  2. STRATTERA [Suspect]
     Dosage: 10 MG, DAILY (1/D)
     Route: 048
  3. CONCERTA [Concomitant]
     Dosage: 36 MG, UNKNOWN
     Dates: start: 20080701

REACTIONS (2)
  - GLAUCOMA [None]
  - OPTIC DISC DISORDER [None]
